FAERS Safety Report 23750302 (Version 1)
Quarter: 2024Q2

REPORT INFORMATION
  Report Type: Other
  Country: CA (occurrence: CA)
  Receive Date: 20240417
  Receipt Date: 20240417
  Transmission Date: 20240715
  Serious: Yes (Hospitalization, Other)
  Sender: FDA-Public Use
  Company Number: CA-GLENMARK PHARMACEUTICALS-2024GMK090045

PATIENT

DRUGS (51)
  1. GABAPENTIN [Suspect]
     Active Substance: GABAPENTIN
     Indication: Scoliosis
     Dosage: 600 MILLIGRAM (3 EVERY 1 DAYS)
     Route: 065
  2. GABAPENTIN [Suspect]
     Active Substance: GABAPENTIN
     Indication: Pain
     Dosage: 600 MILLIGRAM (3 EVERY 1 DAYS)
     Route: 048
  3. GABAPENTIN [Suspect]
     Active Substance: GABAPENTIN
     Dosage: 400 MILLIGRAM (4 EVERY 1 DAYS)
     Route: 048
  4. CYCLOBENZAPRINE [Suspect]
     Active Substance: CYCLOBENZAPRINE
     Indication: Scoliosis
     Dosage: 10 MILLIGRAM 3 EVERY 1 DAYS
     Route: 048
  5. CYCLOBENZAPRINE [Suspect]
     Active Substance: CYCLOBENZAPRINE
     Indication: Pain
     Dosage: 10 MILLIGRAM 2 EVERY 1 DAYS
     Route: 048
  6. CYCLOBENZAPRINE [Suspect]
     Active Substance: CYCLOBENZAPRINE
     Dosage: 10 MILLIGRAM 2 EVERY 1 DAYS
     Route: 048
  7. CYCLOBENZAPRINE [Suspect]
     Active Substance: CYCLOBENZAPRINE
     Indication: Scoliosis
     Dosage: 10 MILLIGRAM 2 EVERY 1 DAYS
     Route: 048
  8. CYCLOBENZAPRINE [Suspect]
     Active Substance: CYCLOBENZAPRINE
     Indication: Pain
  9. DEPAKOTE [Suspect]
     Active Substance: DIVALPROEX SODIUM
     Indication: Mania
     Dosage: 750 MILLIGRAM (1 EVERY 24 HOURS)
     Route: 048
  10. DEPAKOTE [Suspect]
     Active Substance: DIVALPROEX SODIUM
     Indication: Affective disorder
     Dosage: 750 MILLIGRAM (1 EVERY 1 DAYS)
     Route: 048
  11. DEPAKOTE [Suspect]
     Active Substance: DIVALPROEX SODIUM
     Dosage: 250 MILLIGRAM (1 EVERY 1 DAYS)
     Route: 048
  12. DEPAKOTE [Suspect]
     Active Substance: DIVALPROEX SODIUM
     Dosage: 500 MILLIGRAM (1 EVERY 1 DAYS)
     Route: 048
  13. DOXEPIN HYDROCHLORIDE [Suspect]
     Active Substance: DOXEPIN HYDROCHLORIDE
     Indication: Major depression
     Dosage: 50 MILLIGRAM (1 EVERY 24 HOURS)
     Route: 048
  14. DOXEPIN HYDROCHLORIDE [Suspect]
     Active Substance: DOXEPIN HYDROCHLORIDE
     Dosage: 150 MILLIGRAM (1 EVERY 24 HOURS)
     Route: 048
  15. DOXEPIN HYDROCHLORIDE [Suspect]
     Active Substance: DOXEPIN HYDROCHLORIDE
     Dosage: 150 MILLIGRAM (1 EVERY 24 HOURS)
     Route: 048
  16. DOXEPIN HYDROCHLORIDE [Suspect]
     Active Substance: DOXEPIN HYDROCHLORIDE
     Dosage: 100 MILLIGRAM (1 EVERY 24 HOURS)
     Route: 048
  17. FLUOXETINE HYDROCHLORIDE [Suspect]
     Active Substance: FLUOXETINE HYDROCHLORIDE
     Indication: Major depression
     Dosage: 80 MILLIGRAM (1 EVERY 24 HOURS)
     Route: 048
  18. FLUOXETINE HYDROCHLORIDE [Suspect]
     Active Substance: FLUOXETINE HYDROCHLORIDE
     Dosage: 40 MILLIGRAM (1 EVERY 24 HOURS)
     Route: 048
  19. FLUOXETINE HYDROCHLORIDE [Suspect]
     Active Substance: FLUOXETINE HYDROCHLORIDE
     Dosage: 20 MILLIGRAM (1 EVERY 24 HOURS)
     Route: 048
  20. FLUOXETINE HYDROCHLORIDE [Suspect]
     Active Substance: FLUOXETINE HYDROCHLORIDE
     Dosage: 80 MILLIGRAM (1 EVERY 24 HOURS)
     Route: 048
  21. FLUOXETINE HYDROCHLORIDE [Suspect]
     Active Substance: FLUOXETINE HYDROCHLORIDE
     Dosage: 60 MILLIGRAM (1 EVERY 24 HOURS)
     Route: 048
  22. LORAZEPAM [Suspect]
     Active Substance: LORAZEPAM
     Indication: Withdrawal syndrome
     Dosage: 1 EVERY 24 HOURS
     Route: 048
  23. LORAZEPAM [Suspect]
     Active Substance: LORAZEPAM
     Indication: Drug withdrawal syndrome
     Dosage: 1 MILLIGRAM (TOTAL)
     Route: 048
  24. LORAZEPAM [Suspect]
     Active Substance: LORAZEPAM
     Indication: Anxiety
     Dosage: 4 MILLIGRAM
     Route: 048
  25. LORAZEPAM [Suspect]
     Active Substance: LORAZEPAM
     Indication: Affective disorder
     Dosage: 7 MILLIGRAM
     Route: 048
  26. LORAZEPAM [Suspect]
     Active Substance: LORAZEPAM
     Dosage: 6 MILLIGRAM
     Route: 048
  27. LORAZEPAM [Suspect]
     Active Substance: LORAZEPAM
     Dosage: 5 MILLIGRAM
     Route: 048
  28. LORAZEPAM [Suspect]
     Active Substance: LORAZEPAM
     Dosage: 1 MILLIGRAM (1 EVERY 24 HOURS)
     Route: 030
  29. LORAZEPAM [Suspect]
     Active Substance: LORAZEPAM
     Dosage: 3 MILLIGRAM
     Route: 048
  30. LORAZEPAM [Suspect]
     Active Substance: LORAZEPAM
     Dosage: 4 EVERY 1 DAYS
     Route: 048
  31. LORAZEPAM [Suspect]
     Active Substance: LORAZEPAM
     Dosage: 1 MILLIGRAM (TOTAL)
     Route: 030
  32. METHADONE [Suspect]
     Active Substance: METHADONE HYDROCHLORIDE
     Indication: Drug use disorder
     Dosage: 40 MILLIGRAM (1 EVERY 24 HOURS)
     Route: 048
  33. METHADONE [Suspect]
     Active Substance: METHADONE HYDROCHLORIDE
     Dosage: 60 MILLIGRAM (1 EVERY 24 HOURS)
     Route: 048
  34. METHADONE [Suspect]
     Active Substance: METHADONE HYDROCHLORIDE
     Dosage: 75 MILLIGRAM (1 EVERY 24 HOURS)
     Route: 048
  35. METHADONE [Suspect]
     Active Substance: METHADONE HYDROCHLORIDE
     Dosage: 30 MILLIGRAM (1 EVERY 24 HOURS)
     Route: 048
  36. METHADONE [Suspect]
     Active Substance: METHADONE HYDROCHLORIDE
     Dosage: 50 MILLIGRAM (1 EVERY 24 HOURS)
     Route: 048
  37. METHADONE [Suspect]
     Active Substance: METHADONE HYDROCHLORIDE
     Dosage: 30 MILLIGRAM (1 EVERY 24 HOURS)
     Route: 048
  38. METHADONE [Suspect]
     Active Substance: METHADONE HYDROCHLORIDE
     Dosage: 75 MILLIGRAM (1 EVERY 24 HOURS)
     Route: 048
  39. QUETIAPINE FUMARATE [Suspect]
     Active Substance: QUETIAPINE FUMARATE
     Indication: Affective disorder
     Dosage: 4 EVERY 1 DAYS
     Route: 065
  40. QUETIAPINE FUMARATE [Suspect]
     Active Substance: QUETIAPINE FUMARATE
     Dosage: 100 MILLIGRAM ( 1 EVERY 1 DAYS)
     Route: 048
  41. RISPERIDONE [Suspect]
     Active Substance: RISPERIDONE
     Indication: Affective disorder
     Dosage: 1 MILLIGRAM (1 EVERY 24 HOURS)
     Route: 048
  42. ALBUTEROL [Concomitant]
     Active Substance: ALBUTEROL
     Indication: Chronic obstructive pulmonary disease
     Dosage: 200 MICROGRAM (2 EVERY 1 DAYS)
     Route: 065
  43. TIOTROPIUM [Concomitant]
     Active Substance: TIOTROPIUM
     Indication: Chronic obstructive pulmonary disease
     Dosage: 5 MICROGRAM (1 EVERY 24 HOURS)
     Route: 065
  44. NAPROXEN [Concomitant]
     Active Substance: NAPROXEN
     Indication: Scoliosis
     Dosage: 500 MILLIGRAM (2 EVERY 1 DAYS_
     Route: 048
  45. NAPROXEN [Concomitant]
     Active Substance: NAPROXEN
     Indication: Pain
  46. FUROSEMIDE [Concomitant]
     Active Substance: FUROSEMIDE
     Indication: Scoliosis
     Dosage: 40 MILLIGRAM (1 EVERY 24 HOURS)
     Route: 048
  47. FUROSEMIDE [Concomitant]
     Active Substance: FUROSEMIDE
     Indication: Pain
  48. ESTRADIOL [Concomitant]
     Active Substance: ESTRADIOL
     Indication: Endometriosis
     Dosage: 0.5 MILLIGRAM (1 EVERY 24 HOURS)
     Route: 048
  49. CLONIDINE [Concomitant]
     Active Substance: CLONIDINE
     Indication: Drug withdrawal syndrome
     Dosage: 0.1 MILLIGRAM
     Route: 065
  50. CLONIDINE [Concomitant]
     Active Substance: CLONIDINE
     Dosage: UNK
     Route: 065
  51. ATENOLOL [Concomitant]
     Active Substance: ATENOLOL
     Indication: Hypertension
     Dosage: 50 MILLIGRAM (1 EVERY 24 HOURS)
     Route: 048

REACTIONS (7)
  - Toxicity to various agents [Recovering/Resolving]
  - Multiple drug therapy [Recovering/Resolving]
  - Drug interaction [Recovering/Resolving]
  - Mania [Recovering/Resolving]
  - Depressed level of consciousness [Recovering/Resolving]
  - Respiratory depression [Recovering/Resolving]
  - Off label use [Unknown]
